FAERS Safety Report 18778605 (Version 3)
Quarter: 2021Q1

REPORT INFORMATION
  Report Type: Spontaneous
  Country: US (occurrence: US)
  Receive Date: 20210124
  Receipt Date: 20210203
  Transmission Date: 20210419
  Serious: No
  Sender: FDA-Public Use
  Company Number: US-JNJFOC-20210129821

PATIENT
  Age: 33 Year
  Sex: Female
  Weight: 81.72 kg

DRUGS (1)
  1. SIMPONI ARIA [Suspect]
     Active Substance: GOLIMUMAB
     Indication: RHEUMATOID ARTHRITIS
     Route: 042

REACTIONS (7)
  - Joint swelling [Unknown]
  - Increased appetite [Unknown]
  - Pain [Unknown]
  - Drug ineffective [Unknown]
  - Weight increased [Unknown]
  - Arthralgia [Unknown]
  - Decreased appetite [Unknown]
